FAERS Safety Report 23535113 (Version 1)
Quarter: 2024Q1

REPORT INFORMATION
  Report Type: Report from Study
  Country: EG (occurrence: EG)
  Receive Date: 20240217
  Receipt Date: 20240217
  Transmission Date: 20240410
  Serious: Yes (Hospitalization, Other)
  Sender: FDA-Public Use
  Company Number: EG-SANDOZ-SDZ2024EG004615

PATIENT
  Age: 38 Year
  Sex: Female

DRUGS (1)
  1. HYRIMOZ [Suspect]
     Active Substance: ADALIMUMAB-ADAZ
     Indication: Uveitis
     Dosage: 40 MG EVERY OTHER WEEK ( OFF LABEL DOSE  REPORTED BEFORE WITH MRD: 13-JAN-24)
     Route: 058
     Dates: start: 20240113

REACTIONS (5)
  - Hemiparesis [Unknown]
  - Demyelination [Unknown]
  - Paraesthesia [Unknown]
  - Off label use [Unknown]
  - Product prescribing error [Unknown]

NARRATIVE: CASE EVENT DATE: 20240113
